FAERS Safety Report 7832289-0 (Version None)
Quarter: 2011Q4

REPORT INFORMATION
  Report Type: 
  Country: None (occurrence: None)
  Receive Date: 20111022
  Receipt Date: 20111010
  Transmission Date: 20120403
  Serious: Yes (Hospitalization, Other)
  Sender: FDA-Public Use
  Company Number: US-BAYER-2010-007901

PATIENT
  Age: 39 Year
  Sex: Female
  Weight: 88.435 kg

DRUGS (12)
  1. YAZ [Suspect]
     Indication: PREMENSTRUAL SYNDROME
     Dosage: UNK
     Dates: start: 20080901, end: 20091201
  2. LIPITOR [Concomitant]
     Dosage: UNK
     Dates: start: 20010101
  3. PROTONIX [Concomitant]
     Dosage: UNK
     Dates: start: 20010101
  4. BACTRIM DS [Concomitant]
     Dosage: UNK
     Dates: start: 20100313
  5. DROSPIRENONE AND ETHINYL ESTRADIOL [Suspect]
     Indication: PREMENSTRUAL SYNDROME
     Dosage: UNK
     Dates: start: 20091201, end: 20100501
  6. LISINOPRIL [Concomitant]
     Dosage: UNK
     Dates: start: 20050101
  7. ALEVE [Concomitant]
     Dosage: UNK
     Dates: start: 19900101, end: 20000101
  8. LISINOPRIL AND HYDROCHLOROTHIAZIDE [Concomitant]
     Dosage: UNK
     Route: 061
     Dates: start: 20100412
  9. IBUPROFEN (ADVIL) [Concomitant]
     Dosage: UNK
     Dates: start: 19900101, end: 20100101
  10. SOLARAZE [Concomitant]
     Dosage: 3 %, UNK
     Dates: start: 20100515
  11. DESONIDE [Concomitant]
  12. TYLENOL-500 [Concomitant]

REACTIONS (4)
  - INJURY [None]
  - CEREBRAL VENOUS THROMBOSIS [None]
  - PAIN [None]
  - DEEP VEIN THROMBOSIS [None]
